FAERS Safety Report 11747140 (Version 1)
Quarter: 2015Q4

REPORT INFORMATION
  Report Type: Spontaneous
  Country: GB (occurrence: GB)
  Receive Date: 20151117
  Receipt Date: 20151117
  Transmission Date: 20160304
  Serious: Yes (Other)
  Sender: FDA-Public Use
  Company Number: GB-TEVA-607461ACC

PATIENT
  Sex: Female

DRUGS (2)
  1. MORPHINE [Suspect]
     Active Substance: MORPHINE
  2. DICONAL (CYCLIZINE HYDROCHLORIDE\DIPIPANONE HYDROCHLORIDE) [Suspect]
     Active Substance: CYCLIZINE HYDROCHLORIDE\DIPIPANONE HYDROCHLORIDE

REACTIONS (2)
  - Drug dependence [Unknown]
  - Drug intolerance [Unknown]
